FAERS Safety Report 4556951-0 (Version None)
Quarter: 2005Q1

REPORT INFORMATION
  Report Type: 
  Country: None (occurrence: None)
  Receive Date: 20050118
  Receipt Date: 20050103
  Transmission Date: 20050727
  Serious: Yes (Other)
  Sender: FDA-Public Use
  Company Number: 2005003069

PATIENT
  Age: 52 Year
  Sex: Male

DRUGS (5)
  1. ZOLOFT [Suspect]
     Indication: DEPRESSION
     Dosage: 50 MG (50 MG), ORAL
     Route: 048
     Dates: start: 20040101, end: 20041101
  2. ANTINEOPLASTIC AGENTS (ANTINEOPLASTIC AGENTS) [Concomitant]
  3. ACETAMINOPHEN AND TRAMADOL HCL [Concomitant]
  4. ANTINEOPLASTIC AGENTS (ANTINEOPLASTIC AGENTS) [Concomitant]
  5. ANTITHROMBOTIC AGENTS (ANTITHROMBOTIC AGENTS) [Concomitant]

REACTIONS (1)
  - INTERSTITIAL LUNG DISEASE [None]
